FAERS Safety Report 6119537-2 (Version None)
Quarter: 2009Q1

REPORT INFORMATION
  Report Type: 
  Country: None (occurrence: None)
  Receive Date: 20090316
  Receipt Date: 20090306
  Transmission Date: 20090719
  Serious: Yes (Hospitalization)
  Sender: FDA-Public Use
  Company Number: A0773277A

PATIENT
  Age: 71 Year
  Sex: Male
  Weight: 131.8 kg

DRUGS (4)
  1. AVANDIA [Suspect]
     Route: 065
     Dates: start: 20060414, end: 20070501
  2. ACTOS [Concomitant]
     Dates: start: 20050101, end: 20070501
  3. METFORMIN HCL [Concomitant]
     Dates: start: 20050101, end: 20070501
  4. DIABETA [Concomitant]
     Dates: start: 20040501

REACTIONS (3)
  - CARDIAC FAILURE CONGESTIVE [None]
  - PULMONARY HYPERTENSION [None]
  - VENTRICULAR TACHYCARDIA [None]
